FAERS Safety Report 9459588 (Version 1)
Quarter: 2013Q3

REPORT INFORMATION
  Report Type: Spontaneous
  Country: US (occurrence: US)
  Receive Date: 20130815
  Receipt Date: 20130815
  Transmission Date: 20140515
  Serious: No
  Sender: FDA-Public Use
  Company Number: US-009507513-1308USA004234

PATIENT
  Age: 36 Year
  Sex: Female

DRUGS (2)
  1. SAPHRIS [Suspect]
     Indication: MAJOR DEPRESSION
     Dosage: 10 MG, BID
     Route: 060
     Dates: start: 201208
  2. PRISTIQ [Concomitant]

REACTIONS (1)
  - Amnesia [Not Recovered/Not Resolved]
